FAERS Safety Report 9361952 (Version 1)
Quarter: 2013Q2

REPORT INFORMATION
  Report Type: Spontaneous
  Country: DE (occurrence: DE)
  Receive Date: 20130621
  Receipt Date: 20130621
  Transmission Date: 20140414
  Serious: Yes (Other)
  Sender: FDA-Public Use
  Company Number: DE-TEVA-411994GER

PATIENT
  Sex: Male

DRUGS (2)
  1. METFORMIN ABZ [Suspect]
     Route: 048
     Dates: start: 201301, end: 201306
  2. FLECAINID ISIS 100 MG [Interacting]

REACTIONS (2)
  - Atrial fibrillation [Recovered/Resolved]
  - Drug interaction [Unknown]
